FAERS Safety Report 12114019 (Version 1)
Quarter: 2016Q1

REPORT INFORMATION
  Report Type: Spontaneous
  Country: US (occurrence: None)
  Receive Date: 20160224
  Receipt Date: 20160224
  Transmission Date: 20160526
  Serious: Yes (Hospitalization)
  Sender: FDA-Public Use
  Company Number: None

PATIENT
  Age: 63 Year
  Sex: Female
  Weight: 74.84 kg

DRUGS (10)
  1. PERCOCET [Concomitant]
     Active Substance: ACETAMINOPHEN\OXYCODONE HYDROCHLORIDE
  2. VENTOLIN [Concomitant]
     Active Substance: ALBUTEROL SULFATE
  3. VITAMINS [Concomitant]
     Active Substance: VITAMINS
  4. NACL [Concomitant]
     Active Substance: SODIUM CHLORIDE
  5. VALIUM [Concomitant]
     Active Substance: DIAZEPAM
  6. PEPCID [Concomitant]
     Active Substance: FAMOTIDINE
  7. BENICAR [Suspect]
     Active Substance: OLMESARTAN MEDOXOMIL
     Indication: HYPERTENSION
     Route: 048
  8. VERAPAMIL [Concomitant]
     Active Substance: VERAPAMIL HYDROCHLORIDE
  9. SYMBACORT [Concomitant]
  10. MAGNESIUM [Concomitant]
     Active Substance: MAGNESIUM

REACTIONS (5)
  - Impaired work ability [None]
  - Pancreatitis acute [None]
  - Blood sodium decreased [None]
  - Seizure [None]
  - Weight decreased [None]
